FAERS Safety Report 7333228-1 (Version None)
Quarter: 2011Q1

REPORT INFORMATION
  Report Type: 
  Country: None (occurrence: None)
  Receive Date: 20110304
  Receipt Date: 20110221
  Transmission Date: 20110831
  Serious: Yes (Disabling, Other)
  Sender: FDA-Public Use
  Company Number: BR-ELI_LILLY_AND_COMPANY-BR201102005830

PATIENT
  Sex: Female
  Weight: 94 kg

DRUGS (4)
  1. LISINOPRIL [Concomitant]
     Indication: HYPERTENSION
     Dosage: 10 MG, UNKNOWN
     Route: 065
  2. ARTRODAR [Concomitant]
     Indication: PAIN
     Dosage: UNK, DAILY (1/D)
     Route: 065
  3. CELEBREX [Concomitant]
     Indication: MUSCULOSKELETAL PAIN
     Dosage: UNK, DAILY (1/D)
     Route: 065
  4. CYMBALTA [Suspect]
     Indication: FIBROMYALGIA
     Dosage: 60 MG, DAILY (1/D)
     Route: 065
     Dates: start: 20110217

REACTIONS (10)
  - DIARRHOEA [None]
  - TACHYCARDIA [None]
  - ABDOMINAL PAIN [None]
  - BLINDNESS [None]
  - GASTROINTESTINAL PAIN [None]
  - TREMOR [None]
  - CRYING [None]
  - DYSPNOEA [None]
  - VOMITING [None]
  - ABDOMINAL DISCOMFORT [None]
